FAERS Safety Report 10868717 (Version 1)
Quarter: 2015Q1

REPORT INFORMATION
  Report Type: Spontaneous
  Country: US (occurrence: US)
  Receive Date: 20150225
  Receipt Date: 20150225
  Transmission Date: 20150721
  Serious: Yes (Hospitalization, Other)
  Sender: FDA-Public Use
  Company Number: US-ELI_LILLY_AND_COMPANY-US201502006599

PATIENT
  Age: 60 Year
  Sex: Female

DRUGS (12)
  1. HUMALOG [Suspect]
     Active Substance: INSULIN LISPRO
     Indication: TYPE 2 DIABETES MELLITUS
     Dosage: 30 U, TID
     Route: 065
     Dates: end: 201410
  2. POTASSIUM [Concomitant]
     Active Substance: POTASSIUM
     Dosage: 20 MEQ, UNKNOWN
  3. NEPHROCAPS                         /01801401/ [Concomitant]
  4. ALBUTEROL SULFATE AND IPRATROPIUM BROMIDE [Concomitant]
     Route: 055
  5. WARFARIN [Concomitant]
     Active Substance: WARFARIN
     Dosage: 5 MG, EACH EVENING
  6. AMBIEN [Concomitant]
     Active Substance: ZOLPIDEM TARTRATE
     Dosage: 5 MG, EACH EVENING
  7. ERYTHROPOETIN [Concomitant]
     Active Substance: ERYTHROPOIETIN
  8. GABAPENTIN. [Concomitant]
     Active Substance: GABAPENTIN
     Dosage: 700 MG, UNKNOWN
  9. FOLIC ACID. [Concomitant]
     Active Substance: FOLIC ACID
     Dosage: 1 MG, QD
  10. LEXAPRO [Concomitant]
     Active Substance: ESCITALOPRAM OXALATE
     Dosage: 20 MG, UNKNOWN
  11. LANTUS [Concomitant]
     Active Substance: INSULIN GLARGINE
  12. ALLOPURINOL. [Concomitant]
     Active Substance: ALLOPURINOL
     Dosage: 200 MG, UNKNOWN

REACTIONS (3)
  - Hypoglycaemia [Unknown]
  - Cerebrovascular accident [Unknown]
  - Clostridium difficile infection [Unknown]

NARRATIVE: CASE EVENT DATE: 201407
